FAERS Safety Report 8849741 (Version 1)
Quarter: 2012Q4

REPORT INFORMATION
  Report Type: 
  Country: IN (occurrence: IN)
  Receive Date: 20121019
  Receipt Date: 20121019
  Transmission Date: 20130627
  Serious: Yes (Hospitalization)
  Sender: FDA-Public Use
  Company Number: IN-BRISTOL-MYERS SQUIBB COMPANY-17028879

PATIENT
  Age: 60 Year
  Sex: Male

DRUGS (3)
  1. CISPLATIN [Suspect]
     Indication: OESOPHAGEAL CARCINOMA
  2. PACLITAXEL [Suspect]
     Indication: OESOPHAGEAL CARCINOMA
  3. IFOSFAMIDE [Suspect]
     Indication: OESOPHAGEAL CARCINOMA

REACTIONS (1)
  - Acquired tracheo-oesophageal fistula [Recovered/Resolved]
